FAERS Safety Report 4845799-5 (Version None)
Quarter: 2005Q4

REPORT INFORMATION
  Report Type: 
  Country: None (occurrence: None)
  Receive Date: 20051202
  Receipt Date: 20051202
  Transmission Date: 20060501
  Serious: Yes (Other)
  Sender: FDA-Public Use
  Company Number: None

PATIENT
  Age: 75 Year
  Sex: Male

DRUGS (7)
  1. LEVETIRACETAM [Suspect]
     Indication: CONVULSION PROPHYLAXIS
     Dosage: 750MG PO BID
     Route: 048
  2. PANTOPRAZOLE [Concomitant]
  3. VENLAFAXINE HCL [Concomitant]
  4. DOCUSATE [Concomitant]
  5. WARFARIN SODIUM [Concomitant]
  6. ASPIRIN [Concomitant]
  7. ONDANSETRON [Concomitant]

REACTIONS (1)
  - PLATELET COUNT DECREASED [None]
